FAERS Safety Report 5042197-9 (Version None)
Quarter: 2006Q2

REPORT INFORMATION
  Report Type: 
  Country: None (occurrence: None)
  Receive Date: 20060627
  Receipt Date: 20060614
  Transmission Date: 20061013
  Serious: Yes (Other)
  Sender: FDA-Public Use
  Company Number: GXKR2006US03387

PATIENT
  Age: 61 Year
  Sex: Male

DRUGS (7)
  1. PREDNISONE TAB [Suspect]
     Dosage: 5 MG, QD
  2. MYCOPHENOLATE MOFETIL [Suspect]
     Dosage: 1000 MG, BID
  3. TACROLIMUS (TACROLIMUS) [Suspect]
     Dosage: 2 MG, BID
  4. MESALAZINE [Concomitant]
  5. TAMSULOSIN HCL [Concomitant]
  6. OXYBUTYNIN [Concomitant]
  7. ACETYLSALICYLIC ACID SRT [Concomitant]

REACTIONS (4)
  - DIARRHOEA [None]
  - HISTOPLASMOSIS DISSEMINATED [None]
  - PERICARDITIS [None]
  - PLEURAL EFFUSION [None]
